FAERS Safety Report 20131651 (Version 1)
Quarter: 2021Q4

REPORT INFORMATION
  Report Type: Spontaneous
  Country: US (occurrence: None)
  Receive Date: 20211130
  Receipt Date: 20211130
  Transmission Date: 20220303
  Serious: No
  Sender: FDA-Public Use
  Company Number: None

PATIENT
  Age: 56 Year
  Sex: Female
  Weight: 87.54 kg

DRUGS (4)
  1. ETODOLAC [Suspect]
     Active Substance: ETODOLAC
     Indication: Sciatica
     Dosage: FREQUENCY : AS NEEDED;?
     Route: 048
     Dates: start: 20210819, end: 20211130
  2. FLUOXETINE [Concomitant]
     Active Substance: FLUOXETINE HYDROCHLORIDE
     Dates: start: 20000101
  3. LUNESTA [Concomitant]
     Active Substance: ESZOPICLONE
     Dates: start: 20000101
  4. ALPRAZOLAM [Concomitant]
     Active Substance: ALPRAZOLAM

REACTIONS (1)
  - Alopecia [None]

NARRATIVE: CASE EVENT DATE: 20211130
